FAERS Safety Report 7069323-4 (Version None)
Quarter: 2010Q4

REPORT INFORMATION
  Report Type: 
  Country: None (occurrence: None)
  Receive Date: 20101028
  Receipt Date: 20101015
  Transmission Date: 20110411
  Serious: Yes (Life-Threatening, Hospitalization)
  Sender: FDA-Public Use
  Company Number: DE-MYLANLABS-2010S1019132

PATIENT
  Age: 41 Year
  Sex: Male

DRUGS (6)
  1. MESALAZINE [Suspect]
     Indication: COLITIS ULCERATIVE
     Route: 065
  2. AZATHIOPRINE [Suspect]
     Indication: COLITIS ULCERATIVE
     Route: 065
  3. PREDNISOLONE [Suspect]
     Indication: COLITIS ULCERATIVE
     Route: 065
  4. DIPYRONE [Suspect]
     Indication: COLITIS ULCERATIVE
     Route: 065
  5. INFLIXIMAB [Suspect]
     Indication: COLITIS ULCERATIVE
  6. SCOPOLAMINE BUTYL. [Concomitant]
     Indication: COLITIS ULCERATIVE
     Route: 065

REACTIONS (2)
  - MYOCARDIAC ABSCESS [None]
  - STREPTOCOCCAL INFECTION [None]
